FAERS Safety Report 24963289 (Version 2)
Quarter: 2025Q1

REPORT INFORMATION
  Report Type: Spontaneous
  Country: IT (occurrence: IT)
  Receive Date: 20250213
  Receipt Date: 20250219
  Transmission Date: 20250409
  Serious: Yes (Other)
  Sender: CELLTRION
  Company Number: IT-ROCHE-10000057850

PATIENT

DRUGS (10)
  1. BEVACIZUMAB [Suspect]
     Active Substance: BEVACIZUMAB
     Indication: Hepatocellular carcinoma
     Route: 042
     Dates: start: 20240201
  2. TIRAGOLUMAB [Suspect]
     Active Substance: TIRAGOLUMAB
     Indication: Hepatocellular carcinoma
     Route: 042
     Dates: start: 20240201
  3. ATEZOLIZUMAB [Suspect]
     Active Substance: ATEZOLIZUMAB
     Indication: Hepatocellular carcinoma
     Route: 041
     Dates: start: 20240201
  4. BISOPROLOL [Concomitant]
     Active Substance: BISOPROLOL
     Indication: Hypertension
     Route: 048
     Dates: start: 2024
  5. BEZAFIBRATE [Concomitant]
     Active Substance: BEZAFIBRATE
     Indication: Dyslipidaemia
     Route: 048
     Dates: start: 2004
  6. PERINDOPRIL [Concomitant]
     Active Substance: PERINDOPRIL
     Indication: Hypertension
     Route: 048
     Dates: start: 2004
  7. INDAPAMIDE [Concomitant]
     Active Substance: INDAPAMIDE
     Indication: Hypertension
     Route: 048
     Dates: start: 2004
  8. ACETAMINOPHEN [Concomitant]
     Active Substance: ACETAMINOPHEN
     Route: 048
     Dates: start: 20240425, end: 20240604
  9. PREDNISONE [Concomitant]
     Active Substance: PREDNISONE
     Indication: Arthralgia
     Route: 048
     Dates: start: 20240528, end: 20240528
  10. PREDNISONE [Concomitant]
     Active Substance: PREDNISONE
     Route: 048

REACTIONS (2)
  - Hyperthyroidism [Recovered/Resolved]
  - Intentional product use issue [Unknown]

NARRATIVE: CASE EVENT DATE: 20240514
